FAERS Safety Report 4650946-4 (Version None)
Quarter: 2005Q2

REPORT INFORMATION
  Report Type: 
  Country: None (occurrence: None)
  Receive Date: 20050503
  Receipt Date: 20050426
  Transmission Date: 20051028
  Serious: Yes (Other)
  Sender: FDA-Public Use
  Company Number: US-GLAXOSMITHKLINE-A0555746A

PATIENT
  Age: 62 Year
  Sex: Female

DRUGS (2)
  1. AQUAFRESH SENSITIVE MAXIMUM STRENGTH TOOTHPASTE TUBE [Suspect]
     Indication: DENTAL CLEANING
     Dates: start: 19970101
  2. HEART MEDICATION [Concomitant]

REACTIONS (2)
  - BREAST CANCER [None]
  - BREAST CANCER FEMALE [None]
